FAERS Safety Report 6614963-7 (Version None)
Quarter: 2010Q1

REPORT INFORMATION
  Report Type: 
  Country: None (occurrence: None)
  Receive Date: 20100305
  Receipt Date: 20100222
  Transmission Date: 20100710
  Serious: No
  Sender: FDA-Public Use
  Company Number: US-JNJFOC-20100210167

PATIENT

DRUGS (13)
  1. GOLIMUMAB [Suspect]
     Indication: RHEUMATOID ARTHRITIS
     Route: 058
  2. GOLIMUMAB [Suspect]
     Route: 058
  3. PLACEBO [Suspect]
     Indication: RHEUMATOID ARTHRITIS
     Route: 048
  4. METHOTREXATE [Suspect]
     Indication: RHEUMATOID ARTHRITIS
     Route: 048
  5. METHOTREXATE [Suspect]
     Route: 048
  6. TRIVORA-21 [Concomitant]
     Route: 048
  7. DARVOCET-N 100 [Concomitant]
     Route: 048
  8. PREDNISONE [Concomitant]
     Route: 048
  9. NAPROSYN [Concomitant]
     Route: 048
  10. FOLIC ACID [Concomitant]
     Route: 048
  11. LEVOTHYROXINE SODIUM [Concomitant]
     Route: 048
  12. METHOTREXATE [Concomitant]
     Route: 048
  13. METHOTREXATE [Concomitant]
     Route: 048

REACTIONS (1)
  - BASAL CELL CARCINOMA [None]
